FAERS Safety Report 8346171-6 (Version None)
Quarter: 2012Q2

REPORT INFORMATION
  Report Type: 
  Country: None (occurrence: None)
  Receive Date: 20120509
  Receipt Date: 20120425
  Transmission Date: 20120825
  Serious: Yes (Death, Life-Threatening, Hospitalization, Disabling, Other)
  Sender: FDA-Public Use
  Company Number: US-MYLANLABS-2009AC000032

PATIENT
  Age: 79 Year
  Sex: Male
  Weight: 65.32 kg

DRUGS (42)
  1. DIGOXIN [Suspect]
     Indication: PRODUCT USED FOR UNKNOWN INDICATION
     Route: 048
     Dates: start: 19981208, end: 20070409
  2. PACERONE [Concomitant]
  3. ZELNORM [Concomitant]
  4. TETRACYCLINE [Concomitant]
  5. CARVEDILOL [Concomitant]
  6. NORVASC [Concomitant]
  7. WARFARIN SODIUM [Concomitant]
  8. AMIODARONE HCL [Concomitant]
  9. KLOR-CON [Concomitant]
  10. NITROGLYCERIN [Concomitant]
  11. COREG [Concomitant]
  12. FLOMAX [Concomitant]
  13. OCUVITE /01053801/ [Concomitant]
  14. ADVAIR DISKUS 100/50 [Concomitant]
  15. NIACIN [Concomitant]
  16. ZOCOR [Concomitant]
  17. LEXAPRO [Concomitant]
  18. DIOVAN [Concomitant]
  19. ASPIRIN [Concomitant]
  20. CHERATUSSIN [Concomitant]
  21. ZOLPIDEM [Concomitant]
  22. NIASPAN [Concomitant]
  23. LASIX [Concomitant]
  24. OXYGEN [Concomitant]
  25. SIMVASTATIN [Concomitant]
  26. CLARITIN /00413701/ [Concomitant]
  27. DETROL [Concomitant]
  28. AVAPRO [Concomitant]
  29. POTASSIUM CHLORIDE [Concomitant]
  30. DETROL [Concomitant]
  31. GLYCOLAX [Concomitant]
  32. COUMADIN [Concomitant]
  33. ATACAND [Concomitant]
  34. TEMAZEPAM [Concomitant]
  35. CITALOPRAM HYDROBROMIDE [Concomitant]
  36. VALSARTAN [Concomitant]
  37. GLIPIZIDE [Concomitant]
  38. PRILOSEC [Concomitant]
  39. CELEXA [Concomitant]
  40. HYDROCODONE BITARTRATE AND ACETAMINOPHEN [Concomitant]
  41. PROTONIX [Concomitant]
  42. CEPHALEXIN [Concomitant]

REACTIONS (154)
  - TOXICITY TO VARIOUS AGENTS [None]
  - SINUSITIS [None]
  - DELIRIUM [None]
  - AORTIC ANEURYSM [None]
  - PULMONARY HYPERTENSION [None]
  - CARDIAC DISORDER [None]
  - CAROTID BRUIT [None]
  - CACHEXIA [None]
  - NAUSEA [None]
  - BLADDER OBSTRUCTION [None]
  - URINARY TRACT OBSTRUCTION [None]
  - HYPOTENSION [None]
  - ATAXIA [None]
  - MENTAL IMPAIRMENT [None]
  - PALPITATIONS [None]
  - DEAFNESS [None]
  - ASTHENIA [None]
  - MUSCULOSKELETAL PAIN [None]
  - BALANCE DISORDER [None]
  - DIABETES MELLITUS [None]
  - FEELING COLD [None]
  - CONDUCTION DISORDER [None]
  - BLOOD POTASSIUM DECREASED [None]
  - ATELECTASIS [None]
  - GROIN PAIN [None]
  - PERIPHERAL ARTERIAL OCCLUSIVE DISEASE [None]
  - CAROTID ARTERY STENOSIS [None]
  - BENIGN PROSTATIC HYPERPLASIA [None]
  - EAR CONGESTION [None]
  - LABORATORY TEST ABNORMAL [None]
  - LOSS OF EMPLOYMENT [None]
  - DYSPNOEA [None]
  - FATIGUE [None]
  - BLOOD CREATININE INCREASED [None]
  - MICTURITION URGENCY [None]
  - NOCTURIA [None]
  - HYPOKALAEMIA [None]
  - WALKING DISABILITY [None]
  - METABOLIC ACIDOSIS [None]
  - BRONCHIECTASIS [None]
  - NECK PAIN [None]
  - ANGIOPLASTY [None]
  - STENT PLACEMENT [None]
  - ENTEROCOCCAL INFECTION [None]
  - URGE INCONTINENCE [None]
  - HYPOPHAGIA [None]
  - LIVER FUNCTION TEST ABNORMAL [None]
  - DEHYDRATION [None]
  - PNEUMONIA [None]
  - VERTIGO [None]
  - CONTUSION [None]
  - OEDEMA PERIPHERAL [None]
  - CONSTIPATION [None]
  - DEATH [None]
  - BUNDLE BRANCH BLOCK [None]
  - ACTIVITIES OF DAILY LIVING IMPAIRED [None]
  - PROSTATE EXAMINATION ABNORMAL [None]
  - INTRAOCULAR LENS IMPLANT [None]
  - VENTRICULAR TACHYCARDIA [None]
  - PRESYNCOPE [None]
  - EPIGASTRIC DISCOMFORT [None]
  - INTERSTITIAL LUNG DISEASE [None]
  - VOMITING [None]
  - SUPRAVENTRICULAR EXTRASYSTOLES [None]
  - ILL-DEFINED DISORDER [None]
  - FALL [None]
  - HEADACHE [None]
  - ANGINA UNSTABLE [None]
  - PULMONARY FIBROSIS [None]
  - THROMBOSIS [None]
  - NOCTURNAL DYSPNOEA [None]
  - HYPERTENSION [None]
  - ARTERIOSCLEROSIS [None]
  - CARDIAC MURMUR [None]
  - LUNG DISORDER [None]
  - EATING DISORDER [None]
  - INJURY [None]
  - BLINDNESS [None]
  - CARDIAC FAILURE CONGESTIVE [None]
  - BRADYCARDIA [None]
  - FEELING ABNORMAL [None]
  - WEIGHT FLUCTUATION [None]
  - GENERAL PHYSICAL HEALTH DETERIORATION [None]
  - CONFUSIONAL STATE [None]
  - SOMNOLENCE [None]
  - RENAL FAILURE [None]
  - DECREASED APPETITE [None]
  - HAND FRACTURE [None]
  - NERVOUSNESS [None]
  - VITREOUS DETACHMENT [None]
  - COUGH [None]
  - BLOOD POTASSIUM INCREASED [None]
  - PLEURAL EFFUSION [None]
  - CHEST PAIN [None]
  - RECTAL POLYP [None]
  - HYPERLIPIDAEMIA [None]
  - INTERMITTENT CLAUDICATION [None]
  - MYALGIA [None]
  - WEIGHT DECREASED [None]
  - PYREXIA [None]
  - STREPTOCOCCAL INFECTION [None]
  - FAILURE TO THRIVE [None]
  - SINUS BRADYCARDIA [None]
  - DIZZINESS [None]
  - ANHEDONIA [None]
  - WEIGHT INCREASED [None]
  - MUSCULAR WEAKNESS [None]
  - DYSPHAGIA [None]
  - BLOOD PRESSURE DECREASED [None]
  - ABASIA [None]
  - ATRIOVENTRICULAR BLOCK COMPLETE [None]
  - IMPLANTABLE DEFIBRILLATOR REMOVAL [None]
  - RESPIRATORY TRACT CONGESTION [None]
  - MALAISE [None]
  - CEREBROVASCULAR ACCIDENT [None]
  - HOSPICE CARE [None]
  - CIRCULATORY COLLAPSE [None]
  - PERICARDIAL EFFUSION [None]
  - ABDOMINAL PAIN [None]
  - CARDIOMYOPATHY [None]
  - DYSPNOEA EXERTIONAL [None]
  - GASTROOESOPHAGEAL REFLUX DISEASE [None]
  - GASTRITIS [None]
  - HAEMORRHOIDS [None]
  - OSTEOARTHRITIS [None]
  - VASCULAR CALCIFICATION [None]
  - NERVOUS SYSTEM DISORDER [None]
  - AZOTAEMIA [None]
  - HEPATIC CONGESTION [None]
  - HYPOPERFUSION [None]
  - PHYSICAL EXAMINATION ABNORMAL [None]
  - ELECTROCARDIOGRAM ABNORMAL [None]
  - CARDIAC ARREST [None]
  - DISORIENTATION [None]
  - PAIN [None]
  - ECONOMIC PROBLEM [None]
  - TEMPERATURE INTOLERANCE [None]
  - PAIN IN EXTREMITY [None]
  - ARTHRALGIA [None]
  - EXCORIATION [None]
  - BRONCHITIS [None]
  - CORONARY ARTERY DISEASE [None]
  - IMPLANTABLE DEFIBRILLATOR INSERTION [None]
  - POLLAKIURIA [None]
  - URINARY NITROGEN INCREASED [None]
  - MYOCARDIAL INFARCTION [None]
  - DEPRESSION SUICIDAL [None]
  - ARRHYTHMIA [None]
  - CARDIAC VALVE DISEASE [None]
  - PERIPHERAL VASCULAR DISORDER [None]
  - DIVERTICULUM [None]
  - IRON DEFICIENCY ANAEMIA [None]
  - ASBESTOSIS [None]
  - MENTAL STATUS CHANGES [None]
